FAERS Safety Report 10378070 (Version 1)
Quarter: 2014Q1

REPORT INFORMATION
  Report Type: Spontaneous
  Country: US (occurrence: None)
  Receive Date: 20140306
  Receipt Date: 20140306
  Transmission Date: 20141002
  Serious: Yes (Hospitalization, Other)
  Sender: FDA-Public Use
  Company Number: 163-21880-13014908

PATIENT
  Age: 67 Year
  Sex: Male

DRUGS (10)
  1. REVLIMID (LENALIDOMIDE) (2.5 MILLIGRAM, CAPSULES) [Suspect]
     Indication: PLASMA CELL MYELOMA
     Route: 048
     Dates: start: 20121129
  2. AMLODIPINE BESYLATE (AMLODIPINE) [Concomitant]
  3. FLOMAX (TAMSULOSIN HYDROCHLORIDE) (CAPSULES) [Concomitant]
  4. GLUCOSAMINE SULFATE (GLUCOSAMINE SULFATE) [Concomitant]
  5. IMODIUM A-D (LOPERAMIDE HYDROCHLORIDE) (TABLETS) [Concomitant]
  6. MAGNESIUM OXIDE (MAGNESIUM OXIDE) [Concomitant]
  7. MULTIVITAMINS (MULTIVITAMINS) (TABLETS) [Concomitant]
  8. OXYCODONE HCL (OXYCODONE HYDROCHLORIDE) [Concomitant]
  9. PERCOCET (OXYCOCET) [Concomitant]
  10. PRILOSEC (OMEPRAZOLE) (CAPSULES) [Concomitant]

REACTIONS (3)
  - Dyspnoea [None]
  - Anaemia [None]
  - Weight decreased [None]
